FAERS Safety Report 4746033-7 (Version None)
Quarter: 2005Q3

REPORT INFORMATION
  Report Type: 
  Country: None (occurrence: None)
  Receive Date: 20050816
  Receipt Date: 20050429
  Transmission Date: 20060218
  Serious: Yes (Life-Threatening, Hospitalization)
  Sender: FDA-Public Use
  Company Number: PHHO2005PL06948

PATIENT
  Age: 61 Year
  Sex: Male
  Weight: 74 kg

DRUGS (7)
  1. ASPIRIN [Concomitant]
  2. NATEGLINIDE [Suspect]
     Indication: GLUCOSE TOLERANCE IMPAIRED
     Dosage: LEVEL 1
     Route: 048
     Dates: start: 20030709
  3. NATEGLINIDE [Suspect]
     Dosage: LEVEL 2
     Route: 048
     Dates: end: 20050416
  4. NATEGLINIDE [Suspect]
     Dosage: LEVEL 2
     Route: 048
     Dates: end: 20050705
  5. VALSARTAN [Suspect]
     Indication: CARDIOVASCULAR DISORDER
     Dosage: LEVEL 1
     Route: 048
     Dates: start: 20030709
  6. VALSARTAN [Suspect]
     Dosage: LEVEL 2
     Route: 048
     Dates: end: 20050416
  7. VALSARTAN [Suspect]
     Dosage: LEVEL 2
     Route: 048
     Dates: end: 20050705

REACTIONS (11)
  - ABDOMINAL PAIN [None]
  - CHRONIC HEPATITIS [None]
  - DIARRHOEA [None]
  - DISEASE PROGRESSION [None]
  - DUODENITIS [None]
  - EROSIVE OESOPHAGITIS [None]
  - GASTRODUODENITIS [None]
  - GIARDIASIS [None]
  - HELICOBACTER INFECTION [None]
  - PANCREATITIS ACUTE [None]
  - RENAL DISORDER [None]
